FAERS Safety Report 7126458-5 (Version None)
Quarter: 2010Q4

REPORT INFORMATION
  Report Type: 
  Country: None (occurrence: None)
  Receive Date: 20101129
  Receipt Date: 20101123
  Transmission Date: 20110411
  Serious: Yes (Other)
  Sender: FDA-Public Use
  Company Number: IT-PFIZER INC-2010157737

PATIENT
  Age: 63 Year
  Sex: Female

DRUGS (1)
  1. ECALTA [Suspect]
     Indication: ANTIFUNGAL PROPHYLAXIS
     Dosage: 200 MG, 1X/DAY
     Route: 042
     Dates: start: 20101115, end: 20101115

REACTIONS (4)
  - ABDOMINAL PAIN UPPER [None]
  - HYPERTENSIVE EMERGENCY [None]
  - PRESYNCOPE [None]
  - RASH ERYTHEMATOUS [None]
